FAERS Safety Report 4603012-8 (Version None)
Quarter: 2005Q1

REPORT INFORMATION
  Report Type: 
  Country: None (occurrence: None)
  Receive Date: 20050309
  Receipt Date: 20050302
  Transmission Date: 20050727
  Serious: Yes (Other)
  Sender: FDA-Public Use
  Company Number: BR-ROCHE-397440

PATIENT
  Age: 28 Year
  Sex: Male
  Weight: 101 kg

DRUGS (1)
  1. ROACUTAN [Suspect]
     Indication: OILY SKIN
     Route: 048
     Dates: start: 20041115, end: 20050218

REACTIONS (4)
  - ANXIETY [None]
  - CHEST PAIN [None]
  - DEPRESSION [None]
  - SUICIDAL IDEATION [None]
